FAERS Safety Report 4945004-5 (Version None)
Quarter: 2006Q1

REPORT INFORMATION
  Report Type: 
  Country: None (occurrence: None)
  Receive Date: 20060117
  Receipt Date: 20050621
  Transmission Date: 20060701
  Serious: Yes (Other)
  Sender: FDA-Public Use
  Company Number: A03200501856

PATIENT
  Age: 86 Year
  Sex: Female
  Weight: 49.43 kg

DRUGS (2)
  1. PLAVIX [Suspect]
     Indication: MYOCARDIAL INFARCTION
     Dosage: 75 MG QD - ORAL
     Route: 048
     Dates: start: 20040101
  2. ASPIRIN [Suspect]
     Indication: MYOCARDIAL INFARCTION
     Dosage: 81 MG QD - ORAL
     Route: 048
     Dates: start: 20040101

REACTIONS (3)
  - CONTUSION [None]
  - EYE HAEMORRHAGE [None]
  - VISUAL DISTURBANCE [None]
